FAERS Safety Report 8524005-4 (Version None)
Quarter: 2012Q3

REPORT INFORMATION
  Report Type: 
  Country: None (occurrence: None)
  Receive Date: 20120720
  Receipt Date: 20120716
  Transmission Date: 20120928
  Serious: Yes (Life-Threatening, Hospitalization, Other)
  Sender: FDA-Public Use
  Company Number: IL-B.I. PHARMACEUTICALS,INC./RIDGEFIELD-2012-AP-00590RI

PATIENT
  Age: 80 Year
  Sex: Female

DRUGS (7)
  1. RAMIPRIL [Concomitant]
     Indication: HYPERTENSION
     Dosage: 2.5 MG
  2. MIXTARD INSULIN 30/70 [Concomitant]
     Indication: DIABETES MELLITUS
     Dosage: 12U/6U
  3. PRADAXA [Suspect]
     Indication: ATRIAL FIBRILLATION
     Route: 048
  4. PRADAXA [Suspect]
     Indication: CEREBROVASCULAR ACCIDENT
  5. CONCOR [Concomitant]
     Indication: ATRIAL FIBRILLATION
     Dosage: 2.5 MG
  6. FUROSEMIDE [Concomitant]
     Indication: CARDIAC FAILURE
     Dosage: 40 MG
  7. PRADAXA [Suspect]
     Indication: DEEP VEIN THROMBOSIS

REACTIONS (3)
  - RECTAL HAEMORRHAGE [None]
  - HAEMOGLOBIN DECREASED [None]
  - CONVULSION [None]
